FAERS Safety Report 5715252-5 (Version None)
Quarter: 2008Q2

REPORT INFORMATION
  Report Type: 
  Country: None (occurrence: None)
  Receive Date: 20080422
  Receipt Date: 20080408
  Transmission Date: 20081010
  Serious: Yes (Hospitalization)
  Sender: FDA-Public Use
  Company Number: 2008000819

PATIENT
  Age: 70 Year
  Sex: Male
  Weight: 68 kg

DRUGS (17)
  1. ERLOTINIB (ERLOTINIB) (TABLET) (ERLOTINIB) [Suspect]
     Indication: METASTATIC NEOPLASM
     Dosage: 150 MG, QD, ORAL
     Route: 048
     Dates: start: 20080111
  2. BEVACIZUMAB (INJECTION FOR INFUSION) [Suspect]
     Indication: METASTATIC NEOPLASM
     Dosage: 15 MG/KG, DAYS 1 + 22, INTRAVENOUS
     Route: 042
     Dates: start: 20080111
  3. CARBOPLATIN [Suspect]
     Indication: METASTATIC NEOPLASM
     Dosage: 6 OTHER, DAYS 1 IN + 22, INTRAVENOUS
     Route: 042
     Dates: start: 20080111
  4. PACLITAXEL [Suspect]
     Indication: METASTATIC NEOPLASM
     Dosage: 175 MG/M2, DAYS 1 + 22, INTRAVENOUS
     Route: 042
     Dates: start: 20080111
  5. FLOVENT [Concomitant]
  6. SYNTHROID [Concomitant]
  7. ASPIRIN [Concomitant]
  8. NIASPAN [Concomitant]
  9. VYTORIN [Concomitant]
  10. COMPAZINE [Concomitant]
  11. DILAUDD (HYDROMORPHONE HYDROCHLORIDE) [Concomitant]
  12. ZOFRAN [Concomitant]
  13. MEGACE [Concomitant]
  14. PHENERGAN HCL [Concomitant]
  15. PROTONIX [Concomitant]
  16. RESTORIL [Concomitant]
  17. BENADRYL [Concomitant]

REACTIONS (11)
  - ACTH STIMULATION TEST ABNORMAL [None]
  - ASTHENIA [None]
  - BLOOD GLUCOSE INCREASED [None]
  - BLOOD THYROID STIMULATING HORMONE INCREASED [None]
  - CEREBRAL ATROPHY [None]
  - EYE ROLLING [None]
  - HAEMATOCRIT INCREASED [None]
  - HAEMOGLOBIN DECREASED [None]
  - ORTHOSTATIC HYPOTENSION [None]
  - PLATELET COUNT DECREASED [None]
  - THYROXINE FREE DECREASED [None]
